FAERS Safety Report 19165234 (Version 7)
Quarter: 2021Q3

REPORT INFORMATION
  Report Type: Spontaneous
  Country: US (occurrence: US)
  Receive Date: 20210421
  Receipt Date: 20210916
  Transmission Date: 20211014
  Serious: Yes (Hospitalization, Other)
  Sender: FDA-Public Use
  Company Number: US-PFIZER INC-2021349413

PATIENT
  Age: 68 Year
  Sex: Female
  Weight: 104.33 kg

DRUGS (3)
  1. LYRICA [Suspect]
     Active Substance: PREGABALIN
     Indication: PRURITUS
     Dosage: TWICE A DAY
  2. LYRICA [Suspect]
     Active Substance: PREGABALIN
     Dosage: ONCE A DAY
  3. LYRICA [Suspect]
     Active Substance: PREGABALIN
     Indication: NEUROPATHY PERIPHERAL
     Dosage: 150 MG, 2X/DAY
     Route: 048

REACTIONS (6)
  - Neoplasm malignant [Unknown]
  - Intentional product misuse [Not Recovered/Not Resolved]
  - Illness [Unknown]
  - Cardiac disorder [Unknown]
  - Foot deformity [Unknown]
  - Dysgraphia [Unknown]

NARRATIVE: CASE EVENT DATE: 2021
